FAERS Safety Report 6326238-4 (Version None)
Quarter: 2009Q3

REPORT INFORMATION
  Report Type: 
  Country: None (occurrence: None)
  Receive Date: 20090820
  Receipt Date: 20090805
  Transmission Date: 20100115
  Serious: Yes (Other)
  Sender: FDA-Public Use
  Company Number: DSU-2009-01591

PATIENT
  Age: 85 Year
  Sex: Male
  Weight: 88.4514 kg

DRUGS (5)
  1. BENICAR [Suspect]
     Indication: HYPERTENSION
     Dosage: 20 MG (20 MG, QD), PER ORAL, 30 MG (30 MG, QD (1 AND 1/2 20MG TABLET  DAILY), PER ORAL
     Route: 048
     Dates: start: 20090701, end: 20090101
  2. BENICAR [Suspect]
     Indication: HYPERTENSION
     Dosage: 20 MG (20 MG, QD), PER ORAL, 30 MG (30 MG, QD (1 AND 1/2 20MG TABLET  DAILY), PER ORAL
     Route: 048
     Dates: start: 20090101
  3. LISINOPRIL [Concomitant]
  4. AMLODIPINE [Concomitant]
  5. ASPIRIN (ACETYLSALICYLIC ACID (81 MILLIGRAM) (ACETYLSALICYLIC ACID) [Concomitant]

REACTIONS (4)
  - BLOOD PRESSURE DIASTOLIC DECREASED [None]
  - BLOOD PRESSURE SYSTOLIC INCREASED [None]
  - DRUG ADMINISTRATION ERROR [None]
  - WITHDRAWAL SYNDROME [None]
